FAERS Safety Report 15413393 (Version 1)
Quarter: 2018Q3

REPORT INFORMATION
  Report Type: Spontaneous
  Country: GB (occurrence: GB)
  Receive Date: 20180921
  Receipt Date: 20180921
  Transmission Date: 20181010
  Serious: Yes (Hospitalization)
  Sender: FDA-Public Use
  Company Number: GB-009507513-1809GBR006971

PATIENT
  Age: 79 Year
  Sex: Male
  Weight: 65 kg

DRUGS (16)
  1. UREA. [Concomitant]
     Active Substance: UREA
     Dates: start: 20180620
  2. PROPECIA [Concomitant]
     Active Substance: FINASTERIDE
     Dates: start: 2003
  3. FUROSEMIDE. [Concomitant]
     Active Substance: FUROSEMIDE
     Dates: start: 201402
  4. FOLIC ACID. [Concomitant]
     Active Substance: FOLIC ACID
     Dates: start: 201711
  5. APIXABAN [Concomitant]
     Active Substance: APIXABAN
     Dates: start: 201505
  6. FEXOFENADINE HYDROCHLORIDE. [Concomitant]
     Active Substance: FEXOFENADINE HYDROCHLORIDE
     Dates: start: 20180620
  7. DERMOL (BENZALKONIUM CHLORIDE (+) CHLORHEXIDINE HYDROCHLORIDE (+) ISOP [Concomitant]
  8. BISOPROLOL [Concomitant]
     Active Substance: BISOPROLOL
     Dates: start: 201402
  9. FLUTICASONE PROPIONATE (+) SALMETEROL XINAFOATE [Concomitant]
     Active Substance: FLUTICASONE PROPIONATE\SALMETEROL XINAFOATE
     Dates: start: 201207
  10. LOSARTAN POTASSIUM. [Suspect]
     Active Substance: LOSARTAN POTASSIUM
     Indication: HYPERTENSION
     Dosage: 25 MG, QD
     Dates: start: 20180612, end: 20180731
  11. ATORVASTATIN [Concomitant]
     Active Substance: ATORVASTATIN
     Dates: start: 201506
  12. CASSIA [Concomitant]
     Dates: start: 200906
  13. CLOBETASONE BUTYRATE [Concomitant]
     Active Substance: CLOBETASONE BUTYRATE
     Indication: RASH
     Dates: start: 20180712
  14. RAMIPRIL. [Concomitant]
     Active Substance: RAMIPRIL
     Dates: start: 20180530, end: 20180705
  15. SPIRIVA [Concomitant]
     Active Substance: TIOTROPIUM BROMIDE MONOHYDRATE
     Dates: start: 201712
  16. ALBUTEROL. [Concomitant]
     Active Substance: ALBUTEROL
     Dates: start: 201708

REACTIONS (3)
  - Vasculitic rash [Recovering/Resolving]
  - Hypotension [Recovered/Resolved]
  - Acute kidney injury [Recovered/Resolved]

NARRATIVE: CASE EVENT DATE: 20180727
